FAERS Safety Report 10209440 (Version 2)
Quarter: 2014Q2

REPORT INFORMATION
  Report Type: Spontaneous
  Country: JP (occurrence: JP)
  Receive Date: 20140601
  Receipt Date: 20140617
  Transmission Date: 20141212
  Serious: Yes (Other)
  Sender: FDA-Public Use
  Company Number: PHJP2014JP000811

PATIENT
  Age: 71 Year
  Sex: Female

DRUGS (1)
  1. TEGRETOL TAB 200MG [Suspect]
     Indication: EPILEPSY
     Dosage: 600 MG,DAILY
     Route: 048

REACTIONS (4)
  - Herpes zoster [Recovering/Resolving]
  - Rash vesicular [Unknown]
  - Erythema [Unknown]
  - Blister [Unknown]
